FAERS Safety Report 5403601-7 (Version None)
Quarter: 2007Q3

REPORT INFORMATION
  Report Type: 
  Country: None (occurrence: None)
  Receive Date: 20070802
  Receipt Date: 20070723
  Transmission Date: 20080115
  Serious: Yes (Other)
  Sender: FDA-Public Use
  Company Number: PHFR2007GB01586

PATIENT
  Age: 63 Year
  Sex: Female

DRUGS (2)
  1. CLOZARIL [Suspect]
     Indication: SCHIZOPHRENIA
     Dosage: 325MG DAILY
     Route: 048
     Dates: start: 20050926
  2. CLOZARIL [Suspect]
     Route: 065
     Dates: start: 20010101, end: 20020101

REACTIONS (2)
  - BREAST CANCER IN SITU [None]
  - BREAST MASS [None]
